FAERS Safety Report 7478675-2 (Version None)
Quarter: 2011Q2

REPORT INFORMATION
  Report Type: 
  Country: None (occurrence: None)
  Receive Date: 20110513
  Receipt Date: 20110505
  Transmission Date: 20111010
  Serious: Yes (Death)
  Sender: FDA-Public Use
  Company Number: CA-B.I. PHARMACEUTICALS,INC./RIDGEFIELD-2011-DE-02926GD

PATIENT

DRUGS (6)
  1. METRONIDAZOLE [Suspect]
     Indication: NEOPLASM
     Dosage: 750 MG/ME2 ON DAYS 1-5 OF EACH CYCLE EVERY 21 DAYS
     Route: 048
  2. KETOCONAZOLE [Suspect]
     Indication: NEOPLASM
     Dosage: 350 MG/ME2 ON EACH MORNING OF DAYS 0-6 OF EACH CYCLE EVERY 21 DAYS
     Route: 048
  3. TAMOXIFEN CITRATE [Suspect]
     Indication: NEOPLASM
     Dosage: 100 MG/ME2 EACH MORNING ON DAYS 0-6 OF EACH CYCLE EVERY 21 DAYS
     Route: 048
  4. DIPYRIDAMOLE [Suspect]
     Indication: NEOPLASM
     Dosage: 100 MG/ME2 Q6H ON DAYS 0-6 ON EACH CYCLE EVERY 21 DAYS
     Route: 048
  5. ETOPOSIDE [Suspect]
     Indication: NEOPLASM
     Dosage: 75 MG/ME2 ON DAYS 1-5 OF EACH CYCLE EVERY 21 DAYS
     Route: 042
  6. METRONIDAZOLE [Suspect]
     Dosage: 250 MG/ME2 ON DAYS 1-5 OF EACH CYCLE EVERY 21 DAYS
     Route: 054

REACTIONS (3)
  - NEUTROPENIC SEPSIS [None]
  - FEBRILE INFECTION [None]
  - PULMONARY HAEMORRHAGE [None]
